FAERS Safety Report 17994379 (Version 4)
Quarter: 2021Q1

REPORT INFORMATION
  Report Type: Spontaneous
  Country: CA (occurrence: CA)
  Receive Date: 20200708
  Receipt Date: 20210302
  Transmission Date: 20210419
  Serious: Yes (Other)
  Sender: FDA-Public Use
  Company Number: CA-PFIZER INC-2020259560

PATIENT
  Age: 58 Year
  Sex: Female

DRUGS (9)
  1. ENBREL [Suspect]
     Active Substance: ETANERCEPT
     Indication: RHEUMATOID ARTHRITIS
     Dosage: UNK
     Route: 065
  2. LYRICA [Suspect]
     Active Substance: PREGABALIN
     Indication: PAIN
     Dosage: UNK
     Route: 065
  3. MORPHINE SULFATE. [Suspect]
     Active Substance: MORPHINE SULFATE
     Dosage: UNK
     Route: 065
  4. MOXIFLOXACIN. [Suspect]
     Active Substance: MOXIFLOXACIN
     Dosage: UNK
     Route: 065
  5. LYRICA [Suspect]
     Active Substance: PREGABALIN
     Indication: HERPES ZOSTER
  6. DEMEROL [Suspect]
     Active Substance: MEPERIDINE HYDROCHLORIDE
     Dosage: UNK
     Route: 065
  7. HUMIRA [Suspect]
     Active Substance: ADALIMUMAB
     Dosage: UNK
     Route: 058
  8. CODEINE [Suspect]
     Active Substance: CODEINE
     Dosage: UNK
     Route: 065
  9. RITUXIMAB. [Suspect]
     Active Substance: RITUXIMAB
     Dosage: UNK
     Route: 042

REACTIONS (10)
  - Drug ineffective [Unknown]
  - Psoriasis [Unknown]
  - Treatment failure [Unknown]
  - Drug hypersensitivity [Unknown]
  - Hypertension [Unknown]
  - Thrombocytopenia [Unknown]
  - Drug intolerance [Unknown]
  - Pyrexia [Unknown]
  - Rash [Unknown]
  - Upper respiratory tract infection [Unknown]
